FAERS Safety Report 4392066-2 (Version None)
Quarter: 2004Q3

REPORT INFORMATION
  Report Type: 
  Country: None (occurrence: None)
  Receive Date: 20040708
  Receipt Date: 20040622
  Transmission Date: 20050211
  Serious: Yes (Hospitalization)
  Sender: FDA-Public Use
  Company Number: PHRM2004FR02185

PATIENT
  Age: 86 Year
  Sex: Female

DRUGS (9)
  1. CIBADREX [Suspect]
     Indication: ESSENTIAL HYPERTENSION
     Dosage: 1 DF, QD
     Route: 048
     Dates: end: 20040420
  2. ARTANE [Suspect]
     Dosage: 1 DF, QD
     Route: 048
     Dates: end: 20040420
  3. HYPERIUM [Suspect]
     Dosage: 2 DF DAILY
     Route: 048
     Dates: end: 20040422
  4. ARICEPT [Suspect]
     Indication: DEMENTIA ALZHEIMER'S TYPE
     Dosage: 1 DF DAILY
     Route: 048
     Dates: start: 20040401, end: 20040420
  5. SULFARLEM [Suspect]
     Route: 048
     Dates: end: 20040420
  6. ZYLORIC ^GLAXO WELLCOME^ [Concomitant]
     Route: 048
  7. PLAVIX [Concomitant]
  8. LORAZEPAM [Concomitant]
  9. PROZAC [Concomitant]

REACTIONS (6)
  - ANOREXIA [None]
  - DIARRHOEA [None]
  - HALLUCINATION [None]
  - HEADACHE [None]
  - HOT FLUSH [None]
  - INSOMNIA [None]
